FAERS Safety Report 16307787 (Version 2)
Quarter: 2019Q2

REPORT INFORMATION
  Report Type: Report from Study
  Country: US (occurrence: US)
  Receive Date: 20190514
  Receipt Date: 20190524
  Transmission Date: 20190711
  Serious: Yes (Hospitalization, Other)
  Sender: FDA-Public Use
  Company Number: US-GILEAD-2019-0407355

PATIENT
  Age: 80 Year
  Sex: Female
  Weight: 63.95 kg

DRUGS (14)
  1. PROTONIX [OMEPRAZOLE] [Concomitant]
     Active Substance: OMEPRAZOLE
  2. ZYLOPRIM [Concomitant]
     Active Substance: ALLOPURINOL
  3. ADCIRCA [Concomitant]
     Active Substance: TADALAFIL
  4. SPIRONOLACTONE. [Concomitant]
     Active Substance: SPIRONOLACTONE
  5. POTASSIUM [Concomitant]
     Active Substance: POTASSIUM
  6. AMBRISENTAN [Suspect]
     Active Substance: AMBRISENTAN
     Indication: PULMONARY ARTERIAL HYPERTENSION
     Dosage: 10 MG, QD
     Route: 048
     Dates: start: 20160923
  7. ZETIA [Concomitant]
     Active Substance: EZETIMIBE
  8. LANZYME [Concomitant]
  9. VITAMIN D [COLECALCIFEROL] [Concomitant]
     Active Substance: CHOLECALCIFEROL
  10. ASA [Concomitant]
     Active Substance: ASPIRIN
  11. CALTRATE [CALCIUM CARBONATE;COLECALCIFEROL] [Concomitant]
  12. PROVENTIL [Concomitant]
     Active Substance: ALBUTEROL
  13. LASIX [Concomitant]
     Active Substance: FUROSEMIDE
  14. ALDACTONE [Concomitant]
     Active Substance: SPIRONOLACTONE

REACTIONS (4)
  - Tachycardia [Recovered/Resolved]
  - Bronchitis [Recovered/Resolved]
  - Cardiac failure congestive [Recovered/Resolved]
  - Chronic obstructive pulmonary disease [Recovered/Resolved]

NARRATIVE: CASE EVENT DATE: 20190504
